FAERS Safety Report 15190648 (Version 1)
Quarter: 2018Q3

REPORT INFORMATION
  Report Type: Spontaneous
  Country: JP (occurrence: JP)
  Receive Date: 20180724
  Receipt Date: 20180724
  Transmission Date: 20181010
  Serious: Yes (Other)
  Sender: FDA-Public Use
  Company Number: JP-PFIZER INC-2018287390

PATIENT
  Age: 67 Year
  Sex: Female

DRUGS (1)
  1. RHEUMATREX [Suspect]
     Active Substance: METHOTREXATE SODIUM
     Dosage: 6 MG (3 CAPSULES), WEEKLY

REACTIONS (3)
  - Disseminated intravascular coagulation [Unknown]
  - Platelet count decreased [Unknown]
  - White blood cell count decreased [Unknown]
